FAERS Safety Report 18065280 (Version 1)
Quarter: 2020Q3

REPORT INFORMATION
  Report Type: Spontaneous
  Country: NL (occurrence: NL)
  Receive Date: 20200724
  Receipt Date: 20200724
  Transmission Date: 20201103
  Serious: Yes (Hospitalization)
  Sender: FDA-Public Use
  Company Number: NL-ACCORD-192353

PATIENT
  Age: 72 Year
  Sex: Male
  Weight: 72 kg

DRUGS (2)
  1. PANTOPRAZOLE [Concomitant]
     Active Substance: PANTOPRAZOLE
     Dosage: 20 MG (MILLIGRAM)
  2. AZACITIDINE. [Suspect]
     Active Substance: AZACITIDINE
     Indication: CHRONIC MYELOMONOCYTIC LEUKAEMIA
     Dosage: 1DD75MG / M2 FOR 7D PER 28D CYCLE
     Dates: start: 202001, end: 20200511

REACTIONS (1)
  - Non-cirrhotic portal hypertension [Not Recovered/Not Resolved]

NARRATIVE: CASE EVENT DATE: 20200601
